FAERS Safety Report 9471465 (Version 2)
Quarter: 2013Q3

REPORT INFORMATION
  Report Type: Spontaneous
  Country: TR (occurrence: TR)
  Receive Date: 20130822
  Receipt Date: 20130822
  Transmission Date: 20140515
  Serious: Yes (Hospitalization)
  Sender: FDA-Public Use
  Company Number: TR-PFIZER INC-2013236357

PATIENT
  Age: 73 Year
  Sex: Female

DRUGS (2)
  1. SUNITINIB MALATE [Suspect]
     Indication: GASTROINTESTINAL STROMAL TUMOUR
     Dosage: 50 MG, CYCLIC (DAILY, 4 WEEKS ON AND 2 WEEKS OFF)
     Route: 048
  2. SUNITINIB MALATE [Suspect]
     Dosage: 50 MG, CYCLIC (DAILY, 2 WEEKS ON, 2 WEEKS OFF)

REACTIONS (1)
  - Purpura [Recovered/Resolved]
